FAERS Safety Report 18339008 (Version 1)
Quarter: 2020Q4

REPORT INFORMATION
  Report Type: Spontaneous
  Country: US (occurrence: US)
  Receive Date: 20201002
  Receipt Date: 20201002
  Transmission Date: 20210113
  Serious: No
  Sender: FDA-Public Use
  Company Number: None

PATIENT
  Sex: Female

DRUGS (1)
  1. HUMULIN NOS [Suspect]
     Active Substance: INSULIN HUMAN

REACTIONS (1)
  - Hospitalisation [None]
